FAERS Safety Report 4930367-7 (Version None)
Quarter: 2006Q1

REPORT INFORMATION
  Report Type: 
  Country: None (occurrence: None)
  Receive Date: 20060302
  Receipt Date: 20051101
  Transmission Date: 20060701
  Serious: Yes (Hospitalization, Disabling)
  Sender: FDA-Public Use
  Company Number: 2005-UK-02318UK

PATIENT
  Age: 71 Year
  Sex: Female
  Weight: 63 kg

DRUGS (4)
  1. SALMETEROL [Suspect]
     Indication: CHRONIC OBSTRUCTIVE PULMONARY DISEASE
     Route: 055
     Dates: start: 20031104
  2. TIOTROPIUM [Suspect]
     Indication: CHRONIC OBSTRUCTIVE PULMONARY DISEASE
     Route: 055
     Dates: start: 20031104
  3. PREDNISOLONE [Concomitant]
     Indication: CHRONIC OBSTRUCTIVE PULMONARY DISEASE
     Dosage: 30MG PER DAY
     Route: 048
     Dates: start: 20031022, end: 20031103
  4. SALMETEROL [Concomitant]
     Dosage: 100MCG PER DAY
     Route: 055
     Dates: start: 20031021, end: 20031103

REACTIONS (3)
  - FALL [None]
  - FEMORAL NECK FRACTURE [None]
  - OSTEOPOROSIS [None]
